FAERS Safety Report 17661051 (Version 1)
Quarter: 2020Q2

REPORT INFORMATION
  Report Type: Spontaneous
  Country: DE (occurrence: DE)
  Receive Date: 20200413
  Receipt Date: 20200413
  Transmission Date: 20200713
  Serious: Yes (Other)
  Sender: FDA-Public Use
  Company Number: DE-TEVA-2020-DE-1222816

PATIENT
  Age: 83 Year
  Sex: Male
  Weight: 84 kg

DRUGS (3)
  1. ATORVASTATIN [Concomitant]
     Active Substance: ATORVASTATIN
     Indication: CORONARY ARTERY DISEASE
     Dosage: 40MG, 2 SEPARATED DOSES
  2. ACETYLSALICYLIC ACID [Interacting]
     Active Substance: ASPIRIN
     Indication: CORONARY ARTERY DISEASE
     Dosage: 200 MG, 2 SEPARATED DOSES
     Route: 048
  3. EZETIMIB [Suspect]
     Active Substance: EZETIMIBE
     Indication: CORONARY ARTERY DISEASE
     Dosage: 20MG, 2 SEPARATED DOSES

REACTIONS (3)
  - Epistaxis [Recovered/Resolved]
  - Drug interaction [Unknown]
  - Thrombocytopenia [Recovered/Resolved]
